FAERS Safety Report 7511279-1 (Version None)
Quarter: 2011Q2

REPORT INFORMATION
  Report Type: 
  Country: None (occurrence: None)
  Receive Date: 20110531
  Receipt Date: 20110113
  Transmission Date: 20111010
  Serious: Yes (Hospitalization, Other)
  Sender: FDA-Public Use
  Company Number: US-BAYER-201019911NA

PATIENT
  Age: 22 Year
  Sex: Female
  Weight: 61.224 kg

DRUGS (5)
  1. LANOXIN [Concomitant]
     Dosage: UNK UNK, QD
     Route: 048
     Dates: start: 20000101
  2. ATENOLOL [Concomitant]
     Dosage: UNK
     Route: 048
     Dates: start: 20050101
  3. YASMIN [Suspect]
     Indication: PRODUCT USED FOR UNKNOWN INDICATION
  4. DIGOXIN [Concomitant]
  5. YAZ [Suspect]
     Indication: PREMENSTRUAL SYNDROME
     Dosage: UNK UNK, UNK
     Route: 048
     Dates: start: 20070401, end: 20080423

REACTIONS (6)
  - SYNCOPE [None]
  - VISUAL IMPAIRMENT [None]
  - INTRACARDIAC THROMBUS [None]
  - CHEST DISCOMFORT [None]
  - PULMONARY EMBOLISM [None]
  - DYSPNOEA [None]
